FAERS Safety Report 4784053-7 (Version None)
Quarter: 2005Q3

REPORT INFORMATION
  Report Type: 
  Country: None (occurrence: None)
  Receive Date: 20050930
  Receipt Date: 20050927
  Transmission Date: 20060218
  Serious: Yes (Life-Threatening, Other)
  Sender: FDA-Public Use
  Company Number: 2005UW14478

PATIENT
  Age: 64 Year
  Sex: Male

DRUGS (3)
  1. SEROQUEL [Suspect]
     Indication: MAJOR DEPRESSION
     Route: 048
     Dates: start: 20050701
  2. LITHIUM [Concomitant]
  3. TEGRETOL [Concomitant]
     Indication: CONVULSION

REACTIONS (5)
  - COMA [None]
  - DYSTONIA [None]
  - NEUROLEPTIC MALIGNANT SYNDROME [None]
  - OCULOGYRATION [None]
  - SEROTONIN SYNDROME [None]
